FAERS Safety Report 19221250 (Version 4)
Quarter: 2022Q2

REPORT INFORMATION
  Report Type: Report from Study
  Country: US (occurrence: US)
  Receive Date: 20210505
  Receipt Date: 20220404
  Transmission Date: 20220721
  Serious: Yes (Other)
  Sender: FDA-Public Use
  Company Number: US-PFIZER INC-2021365367

PATIENT
  Age: 51 Year
  Sex: Female

DRUGS (4)
  1. IBRANCE [Suspect]
     Active Substance: PALBOCICLIB
     Indication: Breast cancer female
     Dosage: 100 MG, CYCLIC (DAILY, DAY 1-21 OF 28 DAY)
     Route: 048
     Dates: start: 20210319, end: 202104
  2. IBRANCE [Suspect]
     Active Substance: PALBOCICLIB
     Dosage: 75 MG, CYCLIC (ONCE DAILY DAY 1-21 OF 28 DAY CYCLE)
     Route: 048
     Dates: start: 20210427
  3. IBRANCE [Suspect]
     Active Substance: PALBOCICLIB
     Dosage: 75 MG, CYCLIC(3 WEEKS ON 1 WEEK OFF)
     Route: 048
     Dates: start: 20220203, end: 20220217
  4. IBRANCE [Suspect]
     Active Substance: PALBOCICLIB
     Dosage: 75 MG, CYCLIC (1-21 OF 28 DAY CYCLE)
     Route: 048
     Dates: start: 20220318

REACTIONS (6)
  - Full blood count abnormal [Recovering/Resolving]
  - Burning sensation [Unknown]
  - Platelet count decreased [Unknown]
  - Muscle spasms [Unknown]
  - Breast pain [Unknown]
  - Pruritus [Unknown]

NARRATIVE: CASE EVENT DATE: 20210101
